FAERS Safety Report 12482236 (Version 1)
Quarter: 2016Q2

REPORT INFORMATION
  Report Type: Report from Study
  Country: TH (occurrence: TH)
  Receive Date: 20160620
  Receipt Date: 20160620
  Transmission Date: 20160815
  Serious: Yes (Hospitalization)
  Sender: FDA-Public Use
  Company Number: PHHO2012TH011358

PATIENT
  Age: 57 Year
  Sex: Female
  Weight: 60 kg

DRUGS (4)
  1. PLACEBO [Suspect]
     Active Substance: UNSPECIFIED INGREDIENT
     Indication: RHEUMATOID ARTHRITIS
     Dosage: UNK
     Route: 058
     Dates: start: 20120524
  2. PREDNISOLONE. [Suspect]
     Active Substance: PREDNISOLONE
     Indication: RHEUMATOID ARTHRITIS
     Dosage: 5 MG, QD
     Route: 048
  3. AIN457 [Suspect]
     Active Substance: SECUKINUMAB
     Indication: RHEUMATOID ARTHRITIS
     Dosage: 150 MG (EVERY 4 WEEKS)
     Route: 058
     Dates: start: 20120920
  4. METHOTREXATE [Suspect]
     Active Substance: METHOTREXATE
     Indication: RHEUMATOID ARTHRITIS
     Dosage: 15 MG, QW
     Route: 048
     Dates: end: 20120727

REACTIONS (3)
  - Pneumonia [Recovered/Resolved]
  - Cellulitis [Unknown]
  - Bronchitis [Unknown]

NARRATIVE: CASE EVENT DATE: 20120802
